FAERS Safety Report 11189513 (Version 1)
Quarter: 2015Q2

REPORT INFORMATION
  Report Type: Spontaneous
  Country: US (occurrence: None)
  Receive Date: 20150612
  Receipt Date: 20150612
  Transmission Date: 20150821
  Serious: Yes (Other)
  Sender: FDA-Public Use
  Company Number: None

PATIENT
  Age: 31 Year
  Sex: Female

DRUGS (1)
  1. IBRANCE [Suspect]
     Active Substance: PALBOCICLIB
     Indication: BREAST CANCER
     Route: 048
     Dates: start: 20150428

REACTIONS (5)
  - Dry eye [None]
  - Night sweats [None]
  - Dry mouth [None]
  - Hot flush [None]
  - Decreased appetite [None]

NARRATIVE: CASE EVENT DATE: 20150428
